FAERS Safety Report 6522757-6 (Version None)
Quarter: 2009Q4

REPORT INFORMATION
  Report Type: 
  Country: None (occurrence: None)
  Receive Date: 20091230
  Receipt Date: 20091218
  Transmission Date: 20100525
  Serious: Yes (Other)
  Sender: FDA-Public Use
  Company Number: JP-PFIZER INC-2009311066

PATIENT
  Age: 48 Year
  Sex: Female

DRUGS (1)
  1. ZOLOFT [Suspect]
     Indication: DEPRESSIVE SYMPTOM
     Dosage: UNK
     Route: 048
     Dates: start: 20081001, end: 20091210

REACTIONS (4)
  - EAR DISCOMFORT [None]
  - HYPOAESTHESIA [None]
  - MENIERE'S DISEASE [None]
  - METASTASES TO LIVER [None]
